FAERS Safety Report 7193929-5 (Version None)
Quarter: 2010Q4

REPORT INFORMATION
  Report Type: 
  Country: None (occurrence: None)
  Receive Date: 20101124
  Receipt Date: 20101012
  Transmission Date: 20110411
  Serious: No
  Sender: FDA-Public Use
  Company Number: 016709

PATIENT
  Age: 59 Year
  Sex: Female

DRUGS (4)
  1. LACOSAMIDE [Suspect]
     Indication: CONVULSION
     Dosage: (100 MG BID, INCREASED DOSE AFTER 30 DAYS ORAL)
     Route: 048
     Dates: start: 20091001, end: 20091101
  2. LACOSAMIDE [Suspect]
     Indication: CONVULSION
     Dosage: (100 MG BID, INCREASED DOSE AFTER 30 DAYS ORAL)
     Route: 048
     Dates: start: 20091101
  3. DIOVAN [Concomitant]
  4. TAPAZOLE [Concomitant]

REACTIONS (12)
  - ASTHENIA [None]
  - BLOOD PRESSURE INCREASED [None]
  - CONVULSION [None]
  - EMOTIONAL DISORDER [None]
  - FATIGUE [None]
  - FEELING ABNORMAL [None]
  - IMPAIRED WORK ABILITY [None]
  - MUSCLE FATIGUE [None]
  - MUSCLE SPASMS [None]
  - NAUSEA [None]
  - PANIC ATTACK [None]
  - TREMOR [None]
